FAERS Safety Report 20865923 (Version 1)
Quarter: 2022Q2

REPORT INFORMATION
  Report Type: Spontaneous
  Country: US (occurrence: None)
  Receive Date: 20220523
  Receipt Date: 20220523
  Transmission Date: 20220721
  Serious: No
  Sender: FDA-Public Use
  Company Number: None

PATIENT
  Age: 72 Year
  Sex: Female

DRUGS (2)
  1. SIMPONI [Suspect]
     Active Substance: GOLIMUMAB
     Indication: Psoriatic arthropathy
  2. SIMPONI [Suspect]
     Active Substance: GOLIMUMAB
     Dosage: FREQUENCY : MONTHLY;?
     Route: 058
     Dates: start: 202105

REACTIONS (2)
  - Urinary tract infection [None]
  - Inappropriate schedule of product administration [None]
